FAERS Safety Report 16148797 (Version 1)
Quarter: 2019Q2

REPORT INFORMATION
  Report Type: Spontaneous
  Country: MX (occurrence: MX)
  Receive Date: 20190402
  Receipt Date: 20190402
  Transmission Date: 20190711
  Serious: Yes (Other)
  Sender: FDA-Public Use
  Company Number: MX-PFIZER INC-2019141233

PATIENT
  Age: 74 Year
  Sex: Male
  Weight: 58 kg

DRUGS (8)
  1. ENTRESTO [Concomitant]
     Active Substance: SACUBITRIL\VALSARTAN
     Dosage: 50 MG, UNK
     Dates: start: 2016
  2. INSPRA [Concomitant]
     Active Substance: EPLERENONE
     Dosage: 25 MG, UNK
     Dates: start: 2016
  3. CORDARONE [Suspect]
     Active Substance: AMIODARONE HYDROCHLORIDE
     Indication: CARDIAC DISORDER
     Dosage: 1 DF, 1X/DAY
     Route: 048
     Dates: start: 2014
  4. LAXIL (FUROSEMIDE) [Suspect]
     Active Substance: FUROSEMIDE
     Indication: INFLAMMATION
     Dosage: UNK, BID (ONE TABLET IN MORNING AND HALF TABLET IN NIGHT)
     Route: 048
     Dates: start: 2016
  5. UNIVAL [SUCRALFATE] [Concomitant]
     Dosage: 1 G, UNK
     Dates: start: 201811
  6. KARET [Concomitant]
     Dosage: UNK
  7. FOLIC ACID. [Concomitant]
     Active Substance: FOLIC ACID
     Dosage: 5 MG, UNK
  8. ELIQUIS [Concomitant]
     Active Substance: APIXABAN
     Dosage: 5 MG, UNK
     Dates: start: 2016

REACTIONS (2)
  - Deafness unilateral [Not Recovered/Not Resolved]
  - Hypoacusis [Not Recovered/Not Resolved]
